FAERS Safety Report 24277460 (Version 7)
Quarter: 2024Q4

REPORT INFORMATION
  Report Type: Report from Study
  Country: ZA (occurrence: ZA)
  Receive Date: 20240903
  Receipt Date: 20241206
  Transmission Date: 20250114
  Serious: Yes (Life-Threatening, Hospitalization, Other)
  Sender: MYLAN
  Company Number: ZA-MYLANLABS-2024M1077968

PATIENT
  Age: 35 Year
  Sex: Male
  Weight: 64.9 kg

DRUGS (12)
  1. DELAMANID [Suspect]
     Active Substance: DELAMANID
     Indication: Pulmonary tuberculosis
     Dosage: 300 MILLIGRAM, QD (DAILY)
     Route: 048
     Dates: start: 20240522, end: 20240815
  2. DELAMANID [Suspect]
     Active Substance: DELAMANID
     Dosage: UNK
     Route: 065
     Dates: start: 20240828
  3. LINEZOLID [Suspect]
     Active Substance: LINEZOLID
     Indication: Pulmonary tuberculosis
     Dosage: 600 MILLIGRAM, QD (DAILY)
     Route: 048
     Dates: start: 20240522, end: 20240815
  4. LINEZOLID [Suspect]
     Active Substance: LINEZOLID
     Dosage: UNK
     Route: 065
     Dates: start: 20240902
  5. CLOFAZIMINE [Suspect]
     Active Substance: CLOFAZIMINE
     Indication: Pulmonary tuberculosis
     Dosage: 300 MILLIGRAM, QD (DAILY)
     Route: 048
     Dates: start: 20240522, end: 20240606
  6. CLOFAZIMINE [Suspect]
     Active Substance: CLOFAZIMINE
     Dosage: 100 MILLIGRAM, QD (DAILY)
     Route: 048
     Dates: start: 20240607
  7. CLOFAZIMINE [Suspect]
     Active Substance: CLOFAZIMINE
     Dosage: UNK
     Route: 065
     Dates: start: 20240902
  8. BEDAQUILINE [Suspect]
     Active Substance: BEDAQUILINE
     Indication: Pulmonary tuberculosis
     Dosage: 200 MILLIGRAM, QD (DAILY)
     Route: 048
     Dates: start: 20240522, end: 20240815
  9. BEDAQUILINE [Suspect]
     Active Substance: BEDAQUILINE
     Dosage: UNK
     Route: 065
     Dates: start: 20240828
  10. BEDAQUILINE [Suspect]
     Active Substance: BEDAQUILINE
     Dosage: 100 MILLIGRAM, QD
     Route: 065
     Dates: start: 20240723
  11. VALPROATE SODIUM [Concomitant]
     Active Substance: VALPROATE SODIUM
     Indication: Epilepsy
     Dosage: UNK, BID
     Route: 048
     Dates: start: 20240816
  12. VALPROATE SODIUM [Concomitant]
     Active Substance: VALPROATE SODIUM
     Dosage: UNK, BID
     Route: 048
     Dates: start: 20241004

REACTIONS (2)
  - Alcoholic pancreatitis [Recovered/Resolved]
  - Epilepsy [Recovered/Resolved]

NARRATIVE: CASE EVENT DATE: 20240816
